FAERS Safety Report 8400398-3 (Version None)
Quarter: 2012Q2

REPORT INFORMATION
  Report Type: 
  Country: None (occurrence: None)
  Receive Date: 20120531
  Receipt Date: 20120524
  Transmission Date: 20120825
  Serious: Yes (Hospitalization)
  Sender: FDA-Public Use
  Company Number: BE-ABBOTT-12P-013-0939036-00

PATIENT
  Sex: Female
  Weight: 90 kg

DRUGS (7)
  1. ALLOPURINOL [Concomitant]
     Indication: PRODUCT USED FOR UNKNOWN INDICATION
     Dates: start: 20100214
  2. LORMETAZEPAM [Concomitant]
     Indication: INSOMNIA
     Dates: start: 20101008
  3. HUMIRA [Suspect]
     Indication: ANKYLOSING SPONDYLITIS
     Dates: start: 20110201
  4. PANTOPRAZOLE [Concomitant]
     Indication: GASTRIC DISORDER
     Dates: start: 20101008
  5. TRAZODONE HCL [Concomitant]
     Indication: DEPRESSION
     Dates: start: 20110401
  6. CYMBALTA [Concomitant]
     Indication: DEPRESSION
     Dates: start: 20070201
  7. PANTOPRAZOLE [Concomitant]
     Indication: PROPHYLAXIS

REACTIONS (1)
  - CROHN'S DISEASE [None]
